FAERS Safety Report 15391071 (Version 1)
Quarter: 2018Q3

REPORT INFORMATION
  Report Type: Spontaneous
  Country: US (occurrence: US)
  Receive Date: 20180910
  Receipt Date: 20180910
  Transmission Date: 20181010
  Serious: Yes (Hospitalization, Other)
  Sender: FDA-Public Use
  Company Number: None

PATIENT
  Age: 72 Year
  Sex: Female
  Weight: 81.65 kg

DRUGS (36)
  1. VALSARTAN 80MG TABLET TAKE 1 EVERY DAY BY MOUTH [Suspect]
     Active Substance: VALSARTAN
     Indication: BLOOD PRESSURE MANAGEMENT
     Dosage: ?          QUANTITY:1 DF DOSAGE FORM;?
     Route: 048
     Dates: start: 20170921, end: 20180731
  2. VALSARTAN 80MG TABLET TAKE 1 EVERY DAY BY MOUTH [Suspect]
     Active Substance: VALSARTAN
     Indication: MYOCARDIAL INFARCTION
     Dosage: ?          QUANTITY:1 DF DOSAGE FORM;?
     Route: 048
     Dates: start: 20170921, end: 20180731
  3. VITAMIN C [Concomitant]
     Active Substance: ASCORBIC ACID
  4. ZINC. [Concomitant]
     Active Substance: ZINC
  5. HAIR, SKIN + NAILS [Concomitant]
     Active Substance: MINERALS\VITAMINS
  6. ROPINIROLE HCL [Concomitant]
     Active Substance: ROPINIROLE HYDROCHLORIDE
  7. MAGOX (MAGNESIUM OXIDE) [Concomitant]
  8. AMOXICILLIN. [Concomitant]
     Active Substance: AMOXICILLIN
  9. VITAMIN D [Concomitant]
     Active Substance: CHOLECALCIFEROL
  10. ZYRTEC [Concomitant]
     Active Substance: CETIRIZINE HYDROCHLORIDE
  11. PROBIOTICS [Concomitant]
     Active Substance: PROBIOTICS NOS
  12. CLOPIDOGREL [Concomitant]
     Active Substance: CLOPIDOGREL BISULFATE
  13. JANUVIA [Concomitant]
     Active Substance: SITAGLIPTIN PHOSPHATE
  14. ATORVASTATIN [Concomitant]
     Active Substance: ATORVASTATIN
  15. VALSARTAN. [Concomitant]
     Active Substance: VALSARTAN
  16. MULTAQ (DRONEDARONE) [Concomitant]
  17. PREMARIN VAGINAL [Concomitant]
     Active Substance: ESTROGENS, CONJUGATED
  18. LYRICA [Concomitant]
     Active Substance: PREGABALIN
  19. CENTRUM SILVER [Concomitant]
     Active Substance: MINERALS\VITAMINS
  20. FUROSEMIDE. [Concomitant]
     Active Substance: FUROSEMIDE
  21. LOPERAMIDE [Concomitant]
     Active Substance: LOPERAMIDE
  22. FLUTICASONE PROP [Concomitant]
     Active Substance: FLUTICASONE PROPIONATE
  23. GUMMIES W/BIOTIN [Concomitant]
  24. SYSTANE EYEDROPS [Concomitant]
     Active Substance: POLYETHYLENE GLYCOL 400\PROPYLENE GLYCOL
  25. WARFARIN SODIUM. [Concomitant]
     Active Substance: WARFARIN SODIUM
  26. CEFDINIR. [Concomitant]
     Active Substance: CEFDINIR
  27. FISH OIL [Concomitant]
     Active Substance: FISH OIL
  28. EQUATE [Concomitant]
  29. GLIMEPIRIDE. [Concomitant]
     Active Substance: GLIMEPIRIDE
  30. PANTOPRAZOLE [Concomitant]
     Active Substance: PANTOPRAZOLE
  31. AZELASTINE NASAL SPRAY [Concomitant]
     Active Substance: AZELASTINE
  32. CIPROFLOXACIN. [Concomitant]
     Active Substance: CIPROFLOXACIN
  33. TYLENOL [Concomitant]
     Active Substance: ACETAMINOPHEN
  34. NITROGLYCERIN. [Concomitant]
     Active Substance: NITROGLYCERIN
  35. CARVEDILOL. [Concomitant]
     Active Substance: CARVEDILOL
  36. PRECOSE [Concomitant]
     Active Substance: ACARBOSE

REACTIONS (13)
  - Loss of personal independence in daily activities [None]
  - Musculoskeletal pain [None]
  - Asthenia [None]
  - Throat irritation [None]
  - Somnolence [None]
  - Decreased appetite [None]
  - Cardiac failure congestive [None]
  - Headache [None]
  - Dyspnoea [None]
  - Dizziness [None]
  - Dyspnoea exertional [None]
  - Neck pain [None]
  - Pharyngeal disorder [None]
